FAERS Safety Report 7761815-5 (Version None)
Quarter: 2011Q3

REPORT INFORMATION
  Report Type: 
  Country: None (occurrence: None)
  Receive Date: 20110920
  Receipt Date: 20110914
  Transmission Date: 20111222
  Serious: Yes (Hospitalization)
  Sender: FDA-Public Use
  Company Number: AU-B.I. PHARMACEUTICALS,INC./RIDGEFIELD-2011-AU-00900AU

PATIENT
  Sex: Male
  Weight: 86 kg

DRUGS (9)
  1. ACETAMINOPHEN [Concomitant]
     Dosage: 1G QID PRN
  2. SPIRONOLACTONE [Concomitant]
  3. ALLOPURINOL [Concomitant]
  4. SPIRIVA [Suspect]
  5. ENALAPRIL MALEATE [Concomitant]
     Dosage: 20/12.5 MG
  6. FUROSEMIDE [Concomitant]
  7. PRADAXA [Suspect]
     Indication: ATRIAL FIBRILLATION
     Dosage: 300 MG
     Dates: start: 20110725, end: 20110729
  8. TEMAZEPAM [Concomitant]
     Dosage: 10 MG AT NIGHT PRN
  9. METFORMIN HCL [Concomitant]

REACTIONS (2)
  - EPISTAXIS [None]
  - HALLUCINATION [None]
